FAERS Safety Report 6377606-6 (Version None)
Quarter: 2009Q3

REPORT INFORMATION
  Report Type: 
  Country: None (occurrence: None)
  Receive Date: 20090925
  Receipt Date: 20090917
  Transmission Date: 20100115
  Serious: Yes (Hospitalization)
  Sender: FDA-Public Use
  Company Number: KR-TEVA-193545ISR

PATIENT
  Sex: Male
  Weight: 66.7 kg

DRUGS (13)
  1. CARBOPLATIN [Suspect]
     Indication: NON-SMALL CELL LUNG CANCER
     Route: 042
     Dates: start: 20090305
  2. PACLITAXEL [Suspect]
     Indication: NON-SMALL CELL LUNG CANCER
     Route: 042
     Dates: start: 20090305
  3. CP-751,871 [Suspect]
     Indication: NON-SMALL CELL LUNG CANCER
     Route: 042
     Dates: start: 20090305
  4. PARACETAMOL/CODEINE/IBUPROFEN (MYPOL) [Concomitant]
     Dates: start: 20090304
  5. MAGNESIUM OXIDE [Concomitant]
     Dates: start: 20090304
  6. METOCLOPRAMIDE [Concomitant]
     Dates: start: 20090304
  7. LORAZEPAM [Concomitant]
     Dates: start: 20090304
  8. CHLORHEXIDINE GLUCONATE [Concomitant]
     Dates: start: 20090304
  9. GLIMEPIRIDE [Concomitant]
     Dates: start: 19940101
  10. METFORMIN HCL [Concomitant]
     Dates: start: 19940101
  11. DOXAZOSIN MESYLATE [Concomitant]
     Dates: start: 20080101
  12. CLOPIDOGREL [Concomitant]
     Dates: start: 20080101
  13. CILOSTAZOL [Concomitant]
     Dates: start: 20080101

REACTIONS (1)
  - HYPERGLYCAEMIA [None]
